FAERS Safety Report 20219044 (Version 4)
Quarter: 2022Q1

REPORT INFORMATION
  Report Type: Report from Study
  Country: US (occurrence: US)
  Receive Date: 20211222
  Receipt Date: 20220223
  Transmission Date: 20220423
  Serious: Yes (Death, Hospitalization, Other)
  Sender: FDA-Public Use
  Company Number: US-NOVARTISPH-NVSC2021US294021

PATIENT
  Sex: Female

DRUGS (1)
  1. ENTRESTO [Suspect]
     Active Substance: SACUBITRIL\VALSARTAN
     Indication: Product used for unknown indication
     Dosage: UNK
     Route: 065
     Dates: start: 20211107

REACTIONS (11)
  - COVID-19 pneumonia [Fatal]
  - Cough [Fatal]
  - Diarrhoea [Fatal]
  - Respiratory failure [Unknown]
  - Toxic encephalopathy [Unknown]
  - Cardiac failure congestive [Unknown]
  - Clostridium difficile infection [Unknown]
  - Ischaemic cardiomyopathy [Unknown]
  - Coronary artery disease [Unknown]
  - Acute kidney injury [Unknown]
  - Cystitis [Unknown]
